FAERS Safety Report 7931713 (Version 3)
Quarter: 2014Q3

REPORT INFORMATION
  Report Type: Report from Study
  Country: CA (occurrence: CA)
  Receive Date: 20110505
  Receipt Date: 20140825
  Transmission Date: 20150326
  Serious: Yes (Hospitalization, Other)
  Sender: FDA-Public Use
  Company Number: PHHY2010CA32885

PATIENT
  Sex: Male

DRUGS (1)
  1. SANDOSTATIN LAR DEPOT [Suspect]
     Active Substance: OCTREOTIDE ACETATE
     Indication: ACROMEGALY
     Dosage: 40 MG, QMO/EVERY 4 WEEKS
     Route: 030
     Dates: start: 20050102

REACTIONS (3)
  - Gastrointestinal disorder [Unknown]
  - Gastrointestinal pain [Not Recovered/Not Resolved]
  - Chest pain [Unknown]
